FAERS Safety Report 7813928-7 (Version None)
Quarter: 2011Q4

REPORT INFORMATION
  Report Type: 
  Country: None (occurrence: None)
  Receive Date: 20111014
  Receipt Date: 20111010
  Transmission Date: 20120403
  Serious: Yes (Other)
  Sender: FDA-Public Use
  Company Number: US-PFIZER INC-2011241005

PATIENT
  Sex: Female
  Weight: 65.306 kg

DRUGS (3)
  1. CLONAZEPAM [Concomitant]
     Indication: ANXIETY
     Dosage: UNK
  2. SYNTHROID [Concomitant]
     Indication: HYPOTHYROIDISM
     Dosage: UNK
  3. EFFEXOR XR [Suspect]
     Indication: ANXIETY
     Dosage: 37.5 MG, 1X/DAY
     Route: 048
     Dates: start: 20110919

REACTIONS (4)
  - MUSCULOSKELETAL DISCOMFORT [None]
  - MUSCLE TWITCHING [None]
  - VIITH NERVE PARALYSIS [None]
  - HYPOAESTHESIA [None]
